FAERS Safety Report 14895714 (Version 2)
Quarter: 2018Q3

REPORT INFORMATION
  Report Type: Spontaneous
  Country: CH (occurrence: CH)
  Receive Date: 20180515
  Receipt Date: 20180729
  Transmission Date: 20181010
  Serious: Yes (Other)
  Sender: FDA-Public Use
  Company Number: PHHY2018CH005856

PATIENT
  Age: 83 Year
  Sex: Female

DRUGS (1)
  1. KISQALI [Suspect]
     Active Substance: RIBOCICLIB
     Indication: BREAST CANCER
     Dosage: 400 MG, FOR 2 WEEKS
     Route: 065

REACTIONS (4)
  - Thrombocytopenia [Unknown]
  - Erythema [Unknown]
  - Neutropenia [Unknown]
  - Rash [Unknown]
